FAERS Safety Report 4478874-8 (Version None)
Quarter: 2004Q4

REPORT INFORMATION
  Report Type: 
  Country: None (occurrence: None)
  Receive Date: 20041014
  Receipt Date: 20040928
  Transmission Date: 20050328
  Serious: No
  Sender: FDA-Public Use
  Company Number: 2004232434DE

PATIENT
  Age: 35 Year
  Sex: Female
  Weight: 50 kg

DRUGS (2)
  1. DEPO-CLINOVIR(MEDROXYPROGESTERONE ACETATE) SUSPENSION, STERILE, 150MG/ [Suspect]
     Indication: CONTRACEPTION
     Dosage: FIRST AND LAST INJECTION, INTRAMUSCULAR
     Route: 030
     Dates: start: 20040802, end: 20040802
  2. IUD NOS (INTRAUTERINE CONTRACEPTIVE DEVICE) [Concomitant]

REACTIONS (6)
  - ASTHENIA [None]
  - CARDIOVASCULAR DISORDER [None]
  - CIRCULATORY COLLAPSE [None]
  - DRUG INEFFECTIVE [None]
  - HYPOTENSION [None]
  - VOMITING [None]
